FAERS Safety Report 6367712-4 (Version None)
Quarter: 2009Q3

REPORT INFORMATION
  Report Type: 
  Country: None (occurrence: None)
  Receive Date: 20090921
  Receipt Date: 20090911
  Transmission Date: 20100115
  Serious: Yes (Hospitalization, Other)
  Sender: FDA-Public Use
  Company Number: US-ABBOTT-09P-163-0596746-00

PATIENT
  Sex: Female
  Weight: 91.254 kg

DRUGS (2)
  1. HUMIRA [Suspect]
     Indication: RHEUMATOID ARTHRITIS
     Dates: start: 20090201, end: 20090709
  2. CLARITIN [Concomitant]
     Indication: ARTHRITIS

REACTIONS (2)
  - GOITRE [None]
  - LOCAL SWELLING [None]
